FAERS Safety Report 8381416-8 (Version None)
Quarter: 2012Q2

REPORT INFORMATION
  Report Type: 
  Country: None (occurrence: None)
  Receive Date: 20120523
  Receipt Date: 20120522
  Transmission Date: 20120825
  Serious: Yes (Death, Other)
  Sender: FDA-Public Use
  Company Number: US-ROCHE-1068363

PATIENT
  Sex: Female

DRUGS (4)
  1. AVASTIN [Suspect]
     Indication: AGE-RELATED MACULAR DEGENERATION
     Route: 065
  2. CARBOPLATIN [Concomitant]
     Indication: LUNG NEOPLASM MALIGNANT
     Route: 065
  3. PACLITAXEL [Concomitant]
     Indication: LUNG NEOPLASM MALIGNANT
     Route: 065
  4. AVASTIN [Suspect]
     Indication: LUNG NEOPLASM MALIGNANT
     Route: 065

REACTIONS (3)
  - DISEASE PROGRESSION [None]
  - DEATH [None]
  - PRODUCT COUNTERFEIT [None]
